FAERS Safety Report 5856954-X (Version None)
Quarter: 2008Q3

REPORT INFORMATION
  Report Type: 
  Country: None (occurrence: None)
  Receive Date: 20080825
  Receipt Date: 20080818
  Transmission Date: 20090109
  Serious: Yes (Other)
  Sender: FDA-Public Use
  Company Number: US-BAYER-200812529BCC

PATIENT
  Sex: Male

DRUGS (1)
  1. ORIGINAL ALKA-SELTZER TABLETS [Suspect]
     Indication: ANALGESIA
     Route: 048

REACTIONS (1)
  - DRUG DEPENDENCE [None]
